FAERS Safety Report 4430993-8 (Version None)
Quarter: 2004Q3

REPORT INFORMATION
  Report Type: 
  Country: None (occurrence: None)
  Receive Date: 20040824
  Receipt Date: 20040816
  Transmission Date: 20050211
  Serious: Yes (Life-Threatening, Hospitalization)
  Sender: FDA-Public Use
  Company Number: GB-JNJFOC-20040803713

PATIENT
  Sex: Male

DRUGS (11)
  1. REMICADE [Suspect]
     Indication: RHEUMATOID ARTHRITIS
     Route: 042
  2. METHOTREXATE [Concomitant]
  3. INDOMETHACIN 25MG CAP [Concomitant]
  4. NIFEDIPINE [Concomitant]
  5. ESOMEPRAZOLE [Concomitant]
  6. AMITRIPTYLINE HCL [Concomitant]
  7. ANUSOL [Concomitant]
     Route: 054
  8. ANUSOL [Concomitant]
     Route: 054
  9. ANUSOL [Concomitant]
     Route: 054
  10. ANUSOL [Concomitant]
     Route: 054
  11. ANUSOL [Concomitant]
     Route: 054

REACTIONS (7)
  - ASCITES [None]
  - CHOLESTASIS [None]
  - DISSEMINATED TUBERCULOSIS [None]
  - HEPATIC FAILURE [None]
  - RENAL FAILURE CHRONIC [None]
  - RESPIRATORY FAILURE [None]
  - SEPSIS [None]
